FAERS Safety Report 25074238 (Version 2)
Quarter: 2025Q2

REPORT INFORMATION
  Report Type: Spontaneous
  Country: RU (occurrence: RU)
  Receive Date: 20250313
  Receipt Date: 20250411
  Transmission Date: 20250716
  Serious: Yes (Other)
  Sender: RANBAXY
  Company Number: RU-SUN PHARMACEUTICAL INDUSTRIES LTD-2025R1-498437

PATIENT
  Age: 25 Year
  Sex: Male

DRUGS (7)
  1. LEVOFLOXACIN [Suspect]
     Active Substance: LEVOFLOXACIN
     Indication: Intestinal tuberculosis
     Route: 065
     Dates: start: 202202, end: 202308
  2. MESALAMINE [Suspect]
     Active Substance: MESALAMINE
     Indication: Intestinal tuberculosis
     Dosage: 4 GRAM, DAILY
     Route: 065
  3. PYRAZINAMIDE [Suspect]
     Active Substance: PYRAZINAMIDE
     Indication: Intestinal tuberculosis
     Route: 065
     Dates: start: 202202, end: 202308
  4. BEDAQUILINE [Suspect]
     Active Substance: BEDAQUILINE
     Indication: Intestinal tuberculosis
     Route: 065
     Dates: start: 202202, end: 202308
  5. CYCLOSERINE [Suspect]
     Active Substance: CYCLOSERINE
     Indication: Intestinal tuberculosis
     Route: 065
     Dates: start: 202202, end: 202308
  6. CAPREOMYCIN [Suspect]
     Active Substance: CAPREOMYCIN
     Indication: Intestinal tuberculosis
     Route: 065
     Dates: start: 202202, end: 202308
  7. LINEZOLID [Suspect]
     Active Substance: LINEZOLID
     Indication: Intestinal tuberculosis
     Route: 065
     Dates: start: 202202, end: 202308

REACTIONS (2)
  - Condition aggravated [Unknown]
  - Tuberculoma [Unknown]

NARRATIVE: CASE EVENT DATE: 20230505
